FAERS Safety Report 18005372 (Version 1)
Quarter: 2020Q3

REPORT INFORMATION
  Report Type: Spontaneous
  Country: US (occurrence: US)
  Receive Date: 20200709
  Receipt Date: 20200709
  Transmission Date: 20201103
  Serious: Yes (Hospitalization)
  Sender: FDA-Public Use
  Company Number: None

PATIENT
  Age: 80 Year
  Sex: Male
  Weight: 72 kg

DRUGS (6)
  1. D3 100MG [Concomitant]
  2. METFORMIN 500MG EXTENDED RELEASE TABLETS [Suspect]
     Active Substance: METFORMIN HYDROCHLORIDE
     Indication: DIABETES MELLITUS
     Dosage: ?          QUANTITY:372 TABLET(S);OTHER FREQUENCY:2 PILLS TWICE A DA;?
     Route: 048
     Dates: start: 20100709, end: 20200709
  3. ENALAPRIL 5MG [Concomitant]
     Active Substance: ENALAPRIL
  4. IPRATROPIUM BROMIDE NASAL SPRAY [Concomitant]
     Active Substance: IPRATROPIUM BROMIDE
  5. SIMVASTIN 40MG [Concomitant]
  6. B?6 100MG [Concomitant]

REACTIONS (1)
  - Squamous cell carcinoma of the tongue [None]

NARRATIVE: CASE EVENT DATE: 20200513
